FAERS Safety Report 20923438 (Version 1)
Quarter: 2022Q2

REPORT INFORMATION
  Report Type: Spontaneous
  Country: US (occurrence: US)
  Receive Date: 20220607
  Receipt Date: 20220607
  Transmission Date: 20220720
  Serious: Yes (Hospitalization)
  Sender: FDA-Public Use
  Company Number: US-LUPIN PHARMACEUTICALS INC.-2022-08161

PATIENT
  Age: 66 Year
  Sex: Male

DRUGS (1)
  1. CALCIUM [Suspect]
     Active Substance: CALCIUM
     Indication: Hypocalcaemia
     Dosage: UNK, INFUSION
     Route: 065

REACTIONS (2)
  - Hypercalcaemia [Recovered/Resolved]
  - Rebound effect [Recovered/Resolved]
